FAERS Safety Report 17382194 (Version 2)
Quarter: 2020Q2

REPORT INFORMATION
  Report Type: Spontaneous
  Country: US (occurrence: US)
  Receive Date: 20200206
  Receipt Date: 20200506
  Transmission Date: 20200713
  Serious: No
  Sender: FDA-Public Use
  Company Number: US-SA-2020SA026889

PATIENT
  Age: 17 Year
  Sex: Male

DRUGS (6)
  1. DUPIXENT [Suspect]
     Active Substance: DUPILUMAB
     Dosage: 300 MG QOW, STARING ONE WEEK AFTER LOADING DOSE
     Route: 058
     Dates: start: 202001
  2. THYROGEN [Concomitant]
     Active Substance: THYROTROPIN ALFA
  3. VITAMIN D3 [Concomitant]
     Active Substance: CHOLECALCIFEROL
  4. COLACE [Concomitant]
     Active Substance: DOCUSATE SODIUM
  5. DUPIXENT [Suspect]
     Active Substance: DUPILUMAB
     Indication: DERMATITIS ATOPIC
     Dosage: 300 MG, FREQUENCY: STARTER
     Route: 058
     Dates: start: 20200116
  6. HYDROCORTISON [HYDROCORTISONE] [Concomitant]

REACTIONS (4)
  - Product use issue [Unknown]
  - Dermatitis atopic [Not Recovered/Not Resolved]
  - Product use issue [Unknown]
  - Product dose omission [Unknown]

NARRATIVE: CASE EVENT DATE: 202001
